FAERS Safety Report 11079183 (Version 1)
Quarter: 2015Q2

REPORT INFORMATION
  Report Type: Report from Study
  Country: US (occurrence: US)
  Receive Date: 20150430
  Receipt Date: 20150430
  Transmission Date: 20150821
  Serious: Yes (Hospitalization, Other)
  Sender: FDA-Public Use
  Company Number: PHHO2011US16316

PATIENT
  Age: 69 Year
  Sex: Female
  Weight: 61.22 kg

DRUGS (3)
  1. CISPLATIN. [Suspect]
     Active Substance: CISPLATIN
     Indication: NON-SMALL CELL LUNG CANCER
     Dosage: 120 MG, QD
     Route: 065
     Dates: start: 20110912
  2. PEMETREXED [Suspect]
     Active Substance: PEMETREXED
     Indication: NON-SMALL CELL LUNG CANCER
     Dosage: 800 MG, QD
     Route: 065
     Dates: start: 20110912
  3. FARYDAK [Suspect]
     Active Substance: PANOBINOSTAT
     Indication: NON-SMALL CELL LUNG CANCER
     Dosage: 10 MG, UNK
     Route: 048
     Dates: start: 20110912, end: 20110919

REACTIONS (16)
  - Lymphocyte count decreased [Recovered/Resolved]
  - Dehydration [Recovered/Resolved]
  - Platelet count decreased [Recovered/Resolved]
  - White blood cell count decreased [Recovered/Resolved]
  - Hypophosphataemia [Recovered/Resolved]
  - Thrombocytopenia [Not Recovered/Not Resolved]
  - Dysphagia [Recovered/Resolved]
  - Stomatitis [Recovered/Resolved]
  - Sepsis [Recovered/Resolved]
  - Hypertension [Recovered/Resolved]
  - Lung infection [Recovered/Resolved]
  - Lymphocyte count decreased [Recovered/Resolved]
  - Oesophagitis [Recovered/Resolved]
  - Fatigue [Recovered/Resolved]
  - Hypokalaemia [Recovered/Resolved]
  - Dry mouth [Recovered/Resolved]

NARRATIVE: CASE EVENT DATE: 20110919
